FAERS Safety Report 10680806 (Version 4)
Quarter: 2016Q1

REPORT INFORMATION
  Report Type: Report from Study
  Country: US (occurrence: US)
  Receive Date: 20141229
  Receipt Date: 20160125
  Transmission Date: 20160525
  Serious: Yes (Other)
  Sender: FDA-Public Use
  Company Number: US-SA-2014SA177799

PATIENT
  Age: 56 Year
  Sex: Female
  Weight: 127.01 kg

DRUGS (17)
  1. LANTUS [Suspect]
     Active Substance: INSULIN GLARGINE
     Indication: DIABETES MELLITUS
     Dosage: DOSE:43 UNIT(S)
     Route: 065
     Dates: start: 1998
  2. ENBREL [Concomitant]
     Active Substance: ETANERCEPT
  3. LISINOPRIL. [Concomitant]
     Active Substance: LISINOPRIL
  4. FUROSEMIDE. [Concomitant]
     Active Substance: FUROSEMIDE
  5. POTASSIUM CHLORIDE. [Concomitant]
     Active Substance: POTASSIUM CHLORIDE
  6. FAMOTIDINE. [Concomitant]
     Active Substance: FAMOTIDINE
  7. TAZTIA XL [Concomitant]
  8. AMLODIPINE BESILATE [Concomitant]
     Active Substance: AMLODIPINE BESYLATE
  9. GLIPIZIDE. [Concomitant]
     Active Substance: GLIPIZIDE
  10. PRADAXA [Concomitant]
     Active Substance: DABIGATRAN ETEXILATE MESYLATE
  11. LANTUS [Suspect]
     Active Substance: INSULIN GLARGINE
     Indication: DIABETES MELLITUS
     Dosage: DOSE:42 UNIT(S)
     Route: 065
  12. GABAPENTIN. [Concomitant]
     Active Substance: GABAPENTIN
  13. SOTALOL HYDROCHLORIDE. [Concomitant]
     Active Substance: SOTALOL HYDROCHLORIDE
  14. LANTUS [Suspect]
     Active Substance: INSULIN GLARGINE
     Indication: DIABETES MELLITUS
     Dosage: DOSE:48 UNIT(S)
     Route: 058
  15. LOVASTATIN. [Concomitant]
     Active Substance: LOVASTATIN
  16. LEVOTHYROXINE. [Concomitant]
     Active Substance: LEVOTHYROXINE
  17. NASACORT [Concomitant]
     Active Substance: TRIAMCINOLONE ACETONIDE

REACTIONS (2)
  - Cataract operation [Unknown]
  - Salivary gland cancer [Unknown]

NARRATIVE: CASE EVENT DATE: 2009
